FAERS Safety Report 10483733 (Version 1)
Quarter: 2014Q3

REPORT INFORMATION
  Report Type: Spontaneous
  Country: IT (occurrence: IT)
  Receive Date: 20140930
  Receipt Date: 20140930
  Transmission Date: 20150326
  Serious: Yes (Other)
  Sender: FDA-Public Use
  Company Number: IT-TEVA-511264ISR

PATIENT
  Age: 76 Year
  Sex: Male

DRUGS (1)
  1. BICALUTAMIDE TEVA 50 MG [Suspect]
     Active Substance: BICALUTAMIDE
     Dosage: 50 MILLIGRAM DAILY;
     Route: 048
     Dates: start: 20110610, end: 20110622

REACTIONS (2)
  - Ventricular extrasystoles [None]
  - Arrhythmia [Recovered/Resolved]

NARRATIVE: CASE EVENT DATE: 20110622
